FAERS Safety Report 6129767-1 (Version None)
Quarter: 2009Q1

REPORT INFORMATION
  Report Type: 
  Country: None (occurrence: None)
  Receive Date: 20090324
  Receipt Date: 20090313
  Transmission Date: 20090719
  Serious: Yes (Other)
  Sender: FDA-Public Use
  Company Number: D0060737A

PATIENT
  Age: 58 Year
  Sex: Female

DRUGS (7)
  1. LAMICTAL [Suspect]
     Indication: DEPRESSION
     Route: 065
     Dates: start: 20080910
  2. AMITRIPTYLINE HCL [Suspect]
     Indication: DEPRESSION
     Dosage: 150MG PER DAY
     Route: 065
  3. MIRTAZAPINE [Suspect]
     Route: 065
  4. MICARDIS [Concomitant]
     Indication: HYPERTENSION
     Dosage: 80MG PER DAY
     Route: 065
  5. BISOPROLOL [Concomitant]
     Indication: HYPERTENSION
     Dosage: 10MG PER DAY
     Route: 065
  6. AROMASIN [Concomitant]
     Indication: BREAST CANCER
     Dosage: 25MG PER DAY
     Route: 065
  7. TORASEMIDE [Concomitant]
     Indication: HYPERTENSION
     Dosage: 5MG PER DAY
     Route: 065

REACTIONS (1)
  - OBESITY [None]
